FAERS Safety Report 17799664 (Version 2)
Quarter: 2020Q2

REPORT INFORMATION
  Report Type: Report from Study
  Country: FR (occurrence: FR)
  Receive Date: 20200518
  Receipt Date: 20200522
  Transmission Date: 20200714
  Serious: Yes (Other)
  Sender: FDA-Public Use
  Company Number: FR-PFIZER INC-2020195154

PATIENT
  Age: 15 Year
  Sex: Male

DRUGS (6)
  1. FLUDARABINE PHOSPHATE. [Suspect]
     Active Substance: FLUDARABINE PHOSPHATE
     Indication: ACUTE MYELOID LEUKAEMIA REFRACTORY
     Dosage: 30 MG/M2, CYCLIC (OVER 30 MIN ON DAYS 1 TO 5)
  2. CYTARABINE. [Suspect]
     Active Substance: CYTARABINE
     Indication: ACUTE MYELOID LEUKAEMIA REFRACTORY
     Dosage: 200 MG/M2, CYCLIC (OVER 3H ON DAYS 1 TO 5)
  3. GEMTUZUMAB OZOGAMICIN [Suspect]
     Active Substance: GEMTUZUMAB OZOGAMICIN
     Indication: ACUTE MYELOID LEUKAEMIA REFRACTORY
     Dosage: 3 MG/M2, CYCLIC (OVER 2H ON DAYS 1 , 4 AND 7)
  4. GEMTUZUMAB OZOGAMICIN [Suspect]
     Active Substance: GEMTUZUMAB OZOGAMICIN
     Dosage: 2 X 3 MG/M3, CYCLIC, SUPPLEMENTARY
  5. FLUDARABINE PHOSPHATE. [Suspect]
     Active Substance: FLUDARABINE PHOSPHATE
     Dosage: SUPPLEMENTAL
  6. CYTARABINE. [Suspect]
     Active Substance: CYTARABINE
     Dosage: SUPPLEMENTARY COURSE

REACTIONS (2)
  - Pseudomonal sepsis [Unknown]
  - Pancytopenia [Unknown]
